FAERS Safety Report 25765444 (Version 1)
Quarter: 2025Q3

REPORT INFORMATION
  Report Type: Spontaneous
  Country: US (occurrence: US)
  Receive Date: 20250905
  Receipt Date: 20250905
  Transmission Date: 20251020
  Serious: No
  Sender: AUROBINDO
  Company Number: US-AUROBINDO-AUR-APL-2024-056620

PATIENT
  Age: 86 Year
  Sex: Female

DRUGS (1)
  1. IMATINIB MESYLATE [Suspect]
     Active Substance: IMATINIB MESYLATE
     Indication: Chronic myeloid leukaemia
     Dosage: UNK, ONCE A DAY
     Route: 065

REACTIONS (7)
  - Weight decreased [Unknown]
  - Decreased appetite [Unknown]
  - Asthenia [Unknown]
  - Dyspnoea [Unknown]
  - Fatigue [Unknown]
  - Depression [Unknown]
  - Skin disorder [Unknown]
